FAERS Safety Report 24410460 (Version 1)
Quarter: 2024Q4

REPORT INFORMATION
  Report Type: Spontaneous
  Country: US (occurrence: US)
  Receive Date: 20241008
  Receipt Date: 20241008
  Transmission Date: 20250115
  Serious: No
  Sender: APPCO PHARMA
  Company Number: US-Appco Pharma LLC-2162631

PATIENT
  Age: 82 Year
  Sex: Female

DRUGS (1)
  1. GLYCOPYRROLATE [Suspect]
     Active Substance: GLYCOPYRROLATE
     Indication: Hyperhidrosis
     Dates: start: 20240824

REACTIONS (2)
  - Drug ineffective [Unknown]
  - Product size issue [Unknown]
